FAERS Safety Report 13576290 (Version 1)
Quarter: 2017Q2

REPORT INFORMATION
  Report Type: Spontaneous
  Country: IN (occurrence: IN)
  Receive Date: 20170524
  Receipt Date: 20170524
  Transmission Date: 20170830
  Serious: Yes (Death, Other)
  Sender: FDA-Public Use
  Company Number: IN-TORRENT-00001165

PATIENT
  Sex: Male

DRUGS (1)
  1. PIOGLITAZONE. [Suspect]
     Active Substance: PIOGLITAZONE

REACTIONS (3)
  - Neoplasm malignant [Unknown]
  - Metastases to lung [Unknown]
  - Metastases to liver [Unknown]
